FAERS Safety Report 8474268-9 (Version None)
Quarter: 2012Q2

REPORT INFORMATION
  Report Type: 
  Country: None (occurrence: None)
  Receive Date: 20120628
  Receipt Date: 20120621
  Transmission Date: 20120825
  Serious: Yes (Other)
  Sender: FDA-Public Use
  Company Number: US-AMGEN-USASP2011043530

PATIENT
  Age: 80 Year
  Sex: Female

DRUGS (7)
  1. COREG [Concomitant]
     Indication: CORONARY ARTERY DISEASE
     Dosage: 375 MG, QD
     Route: 048
  2. METHOTREXATE [Concomitant]
     Indication: PSORIATIC ARTHROPATHY
  3. ALDACTONE [Concomitant]
     Indication: CORONARY ARTERY DISEASE
     Dosage: 50 MG, QD
     Route: 048
  4. METHOTREXATE [Concomitant]
     Indication: PSORIASIS
     Dosage: 15 MG, QWK
     Route: 048
  5. SYNTHROID [Concomitant]
     Indication: HYPOTHYROIDISM
     Dosage: 125 MUG, QD
     Route: 048
  6. ENBREL [Suspect]
     Indication: PSORIATIC ARTHROPATHY
     Dosage: 50 MG, QWK
     Route: 058
     Dates: start: 20110629, end: 20111231
  7. LIPITOR [Concomitant]
     Indication: CORONARY ARTERY DISEASE
     Dosage: 10 MG, QD
     Route: 048

REACTIONS (9)
  - NEUROPATHY PERIPHERAL [None]
  - INJECTION SITE ERYTHEMA [None]
  - INJECTION SITE REACTION [None]
  - INJECTION SITE PRURITUS [None]
  - PSORIATIC ARTHROPATHY [None]
  - DYSPNOEA [None]
  - PAIN IN EXTREMITY [None]
  - DYSPNOEA EXERTIONAL [None]
  - HYPOAESTHESIA [None]
